FAERS Safety Report 6090952-9 (Version None)
Quarter: 2009Q1

REPORT INFORMATION
  Report Type: 
  Country: None (occurrence: None)
  Receive Date: 20090225
  Receipt Date: 20090218
  Transmission Date: 20090719
  Serious: Yes (Hospitalization, Other)
  Sender: FDA-Public Use
  Company Number: US-RANBAXY-2009US-21922

PATIENT

DRUGS (1)
  1. CEFUROXIME AXETIL [Suspect]
     Indication: SINUSITIS
     Dosage: 500 MG, UNK
     Route: 048
     Dates: start: 20090130, end: 20090208

REACTIONS (7)
  - ERYTHEMA [None]
  - EYE SWELLING [None]
  - FUNGAL INFECTION [None]
  - HEADACHE [None]
  - PRURITUS [None]
  - URINE COLOUR ABNORMAL [None]
  - URTICARIA [None]
